FAERS Safety Report 9375936 (Version 1)
Quarter: 2013Q2

REPORT INFORMATION
  Report Type: Spontaneous
  Country: US (occurrence: US)
  Receive Date: 20130628
  Receipt Date: 20130628
  Transmission Date: 20140414
  Serious: Yes (Other)
  Sender: FDA-Public Use
  Company Number: US-ASTRAZENECA-2013SE48011

PATIENT
  Sex: 0

DRUGS (2)
  1. BRILINTA [Suspect]
     Route: 048
     Dates: start: 201306
  2. BRILINTA [Suspect]
     Route: 048
     Dates: start: 201306

REACTIONS (2)
  - Bradycardia [Unknown]
  - Electrocardiogram abnormal [Unknown]
